FAERS Safety Report 8310918-5 (Version None)
Quarter: 2012Q2

REPORT INFORMATION
  Report Type: 
  Country: None (occurrence: None)
  Receive Date: 20120425
  Receipt Date: 20120417
  Transmission Date: 20120825
  Serious: No
  Sender: FDA-Public Use
  Company Number: US-BIOGENIDEC-2012BI012196

PATIENT
  Age: 69 Year
  Sex: Male

DRUGS (2)
  1. TYSABRI [Suspect]
     Indication: MULTIPLE SCLEROSIS
     Route: 042
     Dates: start: 20120228
  2. HYDROCODONE BITARTRATE [Concomitant]
     Indication: PAIN

REACTIONS (6)
  - TREMOR [None]
  - PRURITUS [None]
  - BACK PAIN [None]
  - OVERDOSE [None]
  - FATIGUE [None]
  - DRUG INEFFECTIVE [None]
